FAERS Safety Report 8269996-4 (Version None)
Quarter: 2012Q2

REPORT INFORMATION
  Report Type: 
  Country: None (occurrence: None)
  Receive Date: 20120410
  Receipt Date: 20120402
  Transmission Date: 20120825
  Serious: Yes (Hospitalization)
  Sender: FDA-Public Use
  Company Number: US-JNJFOC-20120401385

PATIENT
  Sex: Male

DRUGS (2)
  1. ASPIRIN [Concomitant]
     Indication: ILL-DEFINED DISORDER
     Route: 048
  2. XARELTO [Suspect]
     Indication: ILL-DEFINED DISORDER
     Route: 048

REACTIONS (1)
  - GASTROINTESTINAL HAEMORRHAGE [None]
